FAERS Safety Report 8019503-6 (Version None)
Quarter: 2012Q1

REPORT INFORMATION
  Report Type: 
  Country: None (occurrence: None)
  Receive Date: 20120103
  Receipt Date: 20111229
  Transmission Date: 20120608
  Serious: Yes (Other)
  Sender: FDA-Public Use
  Company Number: PHFR2011GB006664

PATIENT
  Sex: Female
  Weight: 62.9 kg

DRUGS (9)
  1. BISOPROLOL [Concomitant]
  2. ZOLEDRONOC ACID [Suspect]
     Indication: OSTEOPOROTIC FRACTURE
     Dosage: 5 MG, UNK
     Route: 042
     Dates: start: 20110803
  3. CHONDROITIN [Concomitant]
  4. MULTI-VITAMINS [Concomitant]
  5. VITAMIN D [Concomitant]
  6. ADCAL-D3 [Concomitant]
  7. LOVAZA [Concomitant]
  8. GLUCOSAMINE [Concomitant]
  9. CODEINE SULFATE [Concomitant]

REACTIONS (13)
  - BLOOD PRESSURE INCREASED [None]
  - ERYTHEMA [None]
  - LOSS OF CONSCIOUSNESS [None]
  - PAIN OF SKIN [None]
  - ALOPECIA [None]
  - NECK PAIN [None]
  - MUSCULOSKELETAL PAIN [None]
  - FATIGUE [None]
  - PRURITUS [None]
  - HEART RATE INCREASED [None]
  - DISCOMFORT [None]
  - INFLUENZA LIKE ILLNESS [None]
  - MADAROSIS [None]
